FAERS Safety Report 6955244-1 (Version None)
Quarter: 2010Q3

REPORT INFORMATION
  Report Type: 
  Country: None (occurrence: None)
  Receive Date: 20100830
  Receipt Date: 20100817
  Transmission Date: 20110219
  Serious: No
  Sender: FDA-Public Use
  Company Number: US-B.I. PHARMACEUTICALS,INC./RIDGEFIELD-2010-BP-09370BP

PATIENT
  Sex: Female
  Weight: 70.31 kg

DRUGS (3)
  1. ZANTAC 150 [Suspect]
     Indication: GASTRITIS
     Route: 048
     Dates: start: 20091201
  2. ATENOLOL [Concomitant]
     Indication: HYPERTENSION
  3. TRIAMTERENE AND HYDROCHLOROTHIAZIDE [Concomitant]
     Indication: HYPERTENSION

REACTIONS (1)
  - GASTRITIS [None]
